FAERS Safety Report 10148974 (Version 1)
Quarter: 2014Q2

REPORT INFORMATION
  Report Type: Spontaneous
  Country: US (occurrence: US)
  Receive Date: 20140502
  Receipt Date: 20140502
  Transmission Date: 20141212
  Serious: Yes (Other)
  Sender: FDA-Public Use
  Company Number: US-AMGEN INC.-USASP2014031583

PATIENT
  Age: 62 Year
  Sex: Female

DRUGS (2)
  1. ENBREL [Suspect]
     Indication: OBLITERATIVE BRONCHIOLITIS
     Dosage: 25 MG, 2 TIMES/WK
     Route: 065
     Dates: start: 20030101
  2. ENBREL [Suspect]
     Indication: IDIOPATHIC PNEUMONIA SYNDROME

REACTIONS (2)
  - Breast cancer [Recovered/Resolved]
  - Memory impairment [Not Recovered/Not Resolved]
